FAERS Safety Report 11726854 (Version 1)
Quarter: 2015Q4

REPORT INFORMATION
  Report Type: Spontaneous
  Country: US (occurrence: US)
  Receive Date: 20151112
  Receipt Date: 20151112
  Transmission Date: 20160304
  Serious: Yes (Other)
  Sender: FDA-Public Use
  Company Number: US-BEH-2015055612

PATIENT
  Sex: Female
  Weight: 84 kg

DRUGS (25)
  1. HYDROCORTISONE. [Concomitant]
     Active Substance: HYDROCORTISONE
  2. CLOPIDOGREL [Concomitant]
     Active Substance: CLOPIDOGREL BISULFATE
  3. LEVOCETIRIZINE DIHYDROCHLORIDE. [Concomitant]
     Active Substance: LEVOCETIRIZINE DIHYDROCHLORIDE
  4. NATURE-THROID [Concomitant]
     Active Substance: THYROID, PORCINE
  5. ESTROGEN METHYLESTOSTERONE [Concomitant]
  6. ESTROGENS [Concomitant]
     Active Substance: ESTROGENS
  7. VITAMIN D3 [Concomitant]
     Active Substance: CHOLECALCIFEROL
  8. PROGESTERONE. [Concomitant]
     Active Substance: PROGESTERONE
  9. ZAFIRLUKAST. [Concomitant]
     Active Substance: ZAFIRLUKAST
  10. SINGULAIR [Concomitant]
     Active Substance: MONTELUKAST SODIUM
  11. PROBIOTIC [Concomitant]
     Active Substance: PROBIOTICS NOS
  12. HERBAL NOS [Concomitant]
     Active Substance: HERBALS
  13. FIBER [Concomitant]
     Active Substance: PSYLLIUM HUSK
  14. ZEMAIRA [Suspect]
     Active Substance: .ALPHA.1-PROTEINASE INHIBITOR HUMAN
     Dosage: ??-DEC-2014
     Route: 042
  15. OXYGEN. [Concomitant]
     Active Substance: OXYGEN
  16. ASPIRIN. [Concomitant]
     Active Substance: ASPIRIN
  17. OMEGA-3 ACIDS [Concomitant]
     Active Substance: OMEGA-3 FATTY ACIDS
  18. TEMAZEPAM. [Concomitant]
     Active Substance: TEMAZEPAM
  19. ZEMAIRA [Suspect]
     Active Substance: .ALPHA.1-PROTEINASE INHIBITOR HUMAN
     Indication: ALPHA-1 ANTI-TRYPSIN DEFICIENCY
     Dosage: ??-DEC-2014
     Route: 042
  20. AZELASTINE [Concomitant]
     Active Substance: AZELASTINE
  21. VENTOLIN [Concomitant]
     Active Substance: ALBUTEROL SULFATE
  22. SYMBICORT [Concomitant]
     Active Substance: BUDESONIDE\FORMOTEROL FUMARATE DIHYDRATE
  23. AMOXICILLIN. [Concomitant]
     Active Substance: AMOXICILLIN
  24. CEPHALEXIN. [Concomitant]
     Active Substance: CEPHALEXIN
  25. DIGOXIN. [Concomitant]
     Active Substance: DIGOXIN

REACTIONS (2)
  - Pulmonary mass [Unknown]
  - Coronary artery stenosis [Unknown]
